FAERS Safety Report 5896591-4 (Version None)
Quarter: 2008Q3

REPORT INFORMATION
  Report Type: 
  Country: None (occurrence: None)
  Receive Date: 20080924
  Receipt Date: 20080912
  Transmission Date: 20090109
  Serious: Yes (Other)
  Sender: FDA-Public Use
  Company Number: GB-PFIZER INC-2008075858

PATIENT
  Sex: Female
  Weight: 67.7 kg

DRUGS (3)
  1. CHANTIX [Suspect]
     Indication: SMOKING CESSATION THERAPY
     Route: 048
     Dates: start: 20070801, end: 20070810
  2. ALBUTEROL SPIROS [Concomitant]
     Route: 055
  3. TIOTROPIUM [Concomitant]
     Route: 048

REACTIONS (4)
  - DEPRESSED MOOD [None]
  - FEELING ABNORMAL [None]
  - NAUSEA [None]
  - TEARFULNESS [None]
